FAERS Safety Report 9030841 (Version 2)
Quarter: 2013Q1

REPORT INFORMATION
  Report Type: Spontaneous
  Country: US (occurrence: US)
  Receive Date: 20130123
  Receipt Date: 20130217
  Transmission Date: 20140127
  Serious: Yes (Life-Threatening, Hospitalization)
  Sender: FDA-Public Use
  Company Number: US-JNJFOC-20130110350

PATIENT
  Age: 49 Year
  Sex: Female

DRUGS (11)
  1. RISPERDAL CONSTA [Suspect]
     Indication: SCHIZOPHRENIA
     Route: 030
  2. AMLODIPINE [Concomitant]
     Route: 048
     Dates: end: 20130109
  3. ADVAIR [Concomitant]
     Route: 055
     Dates: end: 20130109
  4. ADVAIR [Concomitant]
     Route: 055
     Dates: end: 20130109
  5. CLARITIN [Concomitant]
     Route: 048
     Dates: end: 20130109
  6. LOSARTAN [Concomitant]
     Route: 048
     Dates: end: 20130109
  7. NAPROSYN [Concomitant]
     Route: 048
     Dates: end: 20130109
  8. OMEPRAZOLE [Concomitant]
     Route: 048
     Dates: end: 20130109
  9. PIOGLITAZONE [Concomitant]
     Route: 048
     Dates: end: 20130109
  10. SPIRIVA [Concomitant]
     Dosage: 18MCG/ INHALANT/ 1MCG ONCE DAILY INHALED
     Route: 055
     Dates: end: 20130109
  11. ASPIRIN [Concomitant]
     Route: 048
     Dates: end: 20130109

REACTIONS (3)
  - Respiratory failure [Recovered/Resolved]
  - Influenza [Unknown]
  - Pneumonia [Unknown]
